FAERS Safety Report 10471882 (Version 2)
Quarter: 2014Q3

REPORT INFORMATION
  Report Type: Spontaneous
  Country: IN (occurrence: IN)
  Receive Date: 20140924
  Receipt Date: 20140924
  Transmission Date: 20150326
  Serious: Yes (Death, Life-Threatening, Hospitalization, Other)
  Sender: FDA-Public Use
  Company Number: IN-ASPEN PHARMA TRADING LIMITED US-AG-2014-004536

PATIENT
  Age: 72 Year
  Sex: Female

DRUGS (1)
  1. ARIXTRA [Suspect]
     Active Substance: FONDAPARINUX SODIUM
     Indication: THROMBOSIS PROPHYLAXIS
     Route: 058
     Dates: start: 20140703, end: 20140709

REACTIONS (4)
  - Retroperitoneal haemorrhage [Unknown]
  - Haematoma [Fatal]
  - Spontaneous haemorrhage [Unknown]
  - Hypotension [Fatal]

NARRATIVE: CASE EVENT DATE: 20140709
